FAERS Safety Report 19098148 (Version 1)
Quarter: 2021Q2

REPORT INFORMATION
  Report Type: Spontaneous
  Country: PK (occurrence: PK)
  Receive Date: 20210406
  Receipt Date: 20210406
  Transmission Date: 20210717
  Serious: Yes (Hospitalization)
  Sender: FDA-Public Use
  Company Number: PK-AXELLIA-003755

PATIENT
  Age: 9 Year
  Sex: Female

DRUGS (7)
  1. VORICONAZOLE. [Suspect]
     Active Substance: VORICONAZOLE
     Indication: FUNGAL INFECTION
     Route: 042
  2. OMEPRAZOLE. [Concomitant]
     Active Substance: OMEPRAZOLE
  3. MEROPENEM. [Concomitant]
     Active Substance: MEROPENEM
  4. DAUNORUBICIN [Concomitant]
     Active Substance: DAUNORUBICIN
     Indication: ACUTE PROMYELOCYTIC LEUKAEMIA
     Dosage: DAY ONE
  5. VANCOMYCIN [Concomitant]
     Active Substance: VANCOMYCIN
  6. TRETINOIN. [Interacting]
     Active Substance: TRETINOIN
     Indication: ACUTE PROMYELOCYTIC LEUKAEMIA
     Dosage: DAY ONE, STOPPED ON THE 15TH DAY, RESUMED
  7. ARSENIC [Concomitant]
     Active Substance: ARSENIC
     Indication: ACUTE PROMYELOCYTIC LEUKAEMIA
     Dosage: DAY ONE

REACTIONS (2)
  - Hypercalcaemia [Recovered/Resolved]
  - Drug interaction [Unknown]
